FAERS Safety Report 12347784 (Version 1)
Quarter: 2016Q2

REPORT INFORMATION
  Report Type: Spontaneous
  Country: IT (occurrence: IT)
  Receive Date: 20160509
  Receipt Date: 20160509
  Transmission Date: 20160815
  Serious: Yes (Hospitalization)
  Sender: FDA-Public Use
  Company Number: IT-INCYTE CORPORATION-2016IN002635

PATIENT
  Age: 75 Year
  Sex: Male

DRUGS (1)
  1. JAKAFI [Suspect]
     Active Substance: RUXOLITINIB
     Indication: MYELOPROLIFERATIVE NEOPLASM
     Dosage: 40 MG, QD
     Route: 048
     Dates: start: 20151031, end: 20151101

REACTIONS (5)
  - Psychomotor hyperactivity [Recovered/Resolved]
  - Coma [Recovered/Resolved]
  - Product use issue [Unknown]
  - Confusional state [Recovered/Resolved]
  - Hyperammonaemia [Unknown]

NARRATIVE: CASE EVENT DATE: 20151101
